FAERS Safety Report 8967651 (Version 2)
Quarter: 2013Q1

REPORT INFORMATION
  Report Type: Spontaneous
  Country: US (occurrence: None)
  Receive Date: 20121204
  Receipt Date: 20130122
  Transmission Date: 20140127
  Serious: Yes (Death, Hospitalization)
  Sender: FDA-Public Use
  Company Number: DKLU1086710

PATIENT
  Age: 3 Year
  Sex: Female

DRUGS (6)
  1. SABRIL (TABLET) (SABRIL) (VIGABATRIN) (500 MG, TABLET) [Suspect]
     Indication: PRODUCT USED FOR UNKNOWN INDICATION
     Dates: start: 20121108
  2. ONFI [Concomitant]
  3. PHENOARBITAL (PHENOBARBITAL) [Concomitant]
  4. KEPPRA (LEVETIRACETAM) [Concomitant]
  5. KLONOPIN (CLONAZEPAM) [Concomitant]
  6. ZONEGRAN (ZONISAMIDE) [Concomitant]

REACTIONS (3)
  - Pneumonia [None]
  - Respiratory arrest [None]
  - Cardiac arrest [None]
